FAERS Safety Report 5284905-8 (Version None)
Quarter: 2007Q2

REPORT INFORMATION
  Report Type: 
  Country: None (occurrence: None)
  Receive Date: 20070403
  Receipt Date: 20070330
  Transmission Date: 20071010
  Serious: Yes (Other)
  Sender: FDA-Public Use
  Company Number: 2006UW24958

PATIENT
  Sex: Female
  Weight: 111.8 kg

DRUGS (9)
  1. SEROQUEL [Suspect]
     Route: 048
  2. ABILIFY [Concomitant]
  3. NAVANE [Concomitant]
  4. STELAZINE [Concomitant]
  5. THORAZINE [Concomitant]
  6. COGENTEN [Concomitant]
  7. LEXAPRO [Concomitant]
  8. ZYPREXA [Concomitant]
  9. RISPERDAL [Concomitant]

REACTIONS (5)
  - DIABETES MELLITUS [None]
  - HYPERGLYCAEMIA [None]
  - MYOCARDIAL INFARCTION [None]
  - NEUROPATHY [None]
  - TARDIVE DYSKINESIA [None]
